FAERS Safety Report 6527885-7 (Version None)
Quarter: 2010Q1

REPORT INFORMATION
  Report Type: 
  Country: None (occurrence: None)
  Receive Date: 20100105
  Receipt Date: 20100105
  Transmission Date: 20100710
  Serious: Yes (Hospitalization)
  Sender: FDA-Public Use
  Company Number: None

PATIENT
  Age: 80 Year
  Sex: Male

DRUGS (1)
  1. TERAZOSIN HCL [Suspect]
     Indication: BENIGN PROSTATIC HYPERPLASIA
     Dates: start: 20090819, end: 20091027

REACTIONS (5)
  - DIZZINESS [None]
  - GAIT DISTURBANCE [None]
  - HYPOTENSION [None]
  - MEMORY IMPAIRMENT [None]
  - PRESYNCOPE [None]
